FAERS Safety Report 6929574-3 (Version None)
Quarter: 2010Q3

REPORT INFORMATION
  Report Type: 
  Country: None (occurrence: None)
  Receive Date: 20100813
  Receipt Date: 20100809
  Transmission Date: 20110219
  Serious: Yes (Other)
  Sender: FDA-Public Use
  Company Number: TPA2010A04361

PATIENT
  Age: 70 Year
  Sex: Male
  Weight: 81.6475 kg

DRUGS (5)
  1. ACTOS [Suspect]
     Indication: DIABETES MELLITUS
     Dosage: 15 MG, 1 IN 1 D, PER ORAL
     Route: 048
     Dates: start: 20060101, end: 20100802
  2. CRESTOR [Concomitant]
  3. PLAVIX [Concomitant]
  4. ENALAPRIL MALEATE [Concomitant]
  5. ASPIRIN [Concomitant]

REACTIONS (4)
  - BLINDNESS UNILATERAL [None]
  - EYE OEDEMA [None]
  - EYE SWELLING [None]
  - NO THERAPEUTIC RESPONSE [None]
